FAERS Safety Report 16997010 (Version 2)
Quarter: 2020Q2

REPORT INFORMATION
  Report Type: Spontaneous
  Country: NO (occurrence: NO)
  Receive Date: 20191105
  Receipt Date: 20200512
  Transmission Date: 20200713
  Serious: Yes (Hospitalization, Other)
  Sender: FDA-Public Use
  Company Number: NO-GLAXOSMITHKLINE-NO2019EME198981

PATIENT
  Age: 19 Year
  Sex: Female

DRUGS (2)
  1. LAMICTAL [Suspect]
     Active Substance: LAMOTRIGINE
     Indication: BIPOLAR II DISORDER
     Dosage: UNK
     Dates: start: 20190906, end: 20190918
  2. LAMICTAL [Suspect]
     Active Substance: LAMOTRIGINE
     Indication: ANXIETY

REACTIONS (35)
  - Mouth swelling [Unknown]
  - Oral mucosal eruption [Unknown]
  - Lip swelling [Unknown]
  - Skin abrasion [Unknown]
  - Pharyngeal ulceration [Unknown]
  - Oropharyngeal pain [Unknown]
  - Hand-foot-and-mouth disease [Unknown]
  - Lip erosion [Unknown]
  - Genital rash [Unknown]
  - Vasculitis [Unknown]
  - Rash [Unknown]
  - Mouth ulceration [Unknown]
  - Neck pain [Unknown]
  - Odynophagia [Unknown]
  - Coating in mouth [Unknown]
  - Rash vesicular [Unknown]
  - Dry mouth [Unknown]
  - Dysphagia [Unknown]
  - Purpura [Unknown]
  - Swelling face [Unknown]
  - Conjunctivitis [Unknown]
  - Petechiae [Unknown]
  - Eye infection [Unknown]
  - Dysuria [Unknown]
  - Genital erythema [Unknown]
  - Genital erosion [Unknown]
  - Drug reaction with eosinophilia and systemic symptoms [Unknown]
  - Genital ulceration [Unknown]
  - Swelling [Unknown]
  - Pruritus [Unknown]
  - Lymphadenopathy [Unknown]
  - Eosinophilia [Recovered/Resolved]
  - Erythema multiforme [Unknown]
  - Epidermal necrosis [Unknown]
  - Dry eye [Unknown]

NARRATIVE: CASE EVENT DATE: 20190918
